FAERS Safety Report 12519931 (Version 1)
Quarter: 2016Q2

REPORT INFORMATION
  Report Type: Spontaneous
  Country: US (occurrence: US)
  Receive Date: 20160630
  Receipt Date: 20160630
  Transmission Date: 20160815
  Serious: Yes (Other)
  Sender: FDA-Public Use
  Company Number: US-SA-2016SA117725

PATIENT
  Sex: Male

DRUGS (1)
  1. LANTUS [Suspect]
     Active Substance: INSULIN GLARGINE
     Route: 065

REACTIONS (4)
  - Rheumatoid arthritis [Unknown]
  - Hepatic encephalopathy [Unknown]
  - Fine motor skill dysfunction [Unknown]
  - Visual acuity reduced [Unknown]
